FAERS Safety Report 6147209-7 (Version None)
Quarter: 2009Q2

REPORT INFORMATION
  Report Type: 
  Country: None (occurrence: None)
  Receive Date: 20090407
  Receipt Date: 20090309
  Transmission Date: 20091009
  Serious: Yes (Death)
  Sender: FDA-Public Use
  Company Number: US-TYCO HEALTHCARE/MALLINCKRODT-T200900626

PATIENT
  Age: 37 Year
  Sex: Female

DRUGS (3)
  1. METHADOSE [Suspect]
     Indication: PAIN
  2. OXYCODONE HCL [Suspect]
     Indication: PAIN
  3. FOUR OTHER UNSPECIFIED MEDICATIONS [Suspect]

REACTIONS (2)
  - ABNORMAL BEHAVIOUR [None]
  - OVERDOSE [None]
